FAERS Safety Report 4335463-3 (Version None)
Quarter: 2004Q2

REPORT INFORMATION
  Report Type: 
  Country: None (occurrence: None)
  Receive Date: 20040406
  Receipt Date: 20040322
  Transmission Date: 20050107
  Serious: Yes (Hospitalization)
  Sender: FDA-Public Use
  Company Number: 194826

PATIENT
  Age: 47 Year
  Sex: Female
  Weight: 68.9467 kg

DRUGS (8)
  1. AVONEX [Suspect]
     Indication: MULTIPLE SCLEROSIS
     Dosage: 30 MCG QW IM
     Route: 030
     Dates: start: 20020201, end: 20030901
  2. AVONEX [Suspect]
     Indication: MULTIPLE SCLEROSIS
     Dosage: 30 MCG QW IM
     Route: 030
     Dates: start: 20030901
  3. METOPROLOL SUCCINATE [Concomitant]
  4. ALLEGRA [Concomitant]
  5. ALBUTEROL [Concomitant]
  6. ASPIRIN [Concomitant]
  7. PROVIGIL [Concomitant]
  8. BACLOFEN [Concomitant]

REACTIONS (6)
  - ANXIETY [None]
  - BREAST MASS [None]
  - FATIGUE [None]
  - MUSCLE SPASTICITY [None]
  - PAIN [None]
  - UTERINE LEIOMYOMA [None]
